FAERS Safety Report 4601483-4 (Version None)
Quarter: 2005Q1

REPORT INFORMATION
  Report Type: 
  Country: None (occurrence: None)
  Receive Date: 20050307
  Receipt Date: 20050307
  Transmission Date: 20050727
  Serious: Yes (Hospitalization)
  Sender: FDA-Public Use
  Company Number: None

PATIENT
  Sex: Male
  Weight: 98.4306 kg

DRUGS (1)
  1. CARBAMAZEPINE [Suspect]

REACTIONS (7)
  - ASTHENIA [None]
  - DYSARTHRIA [None]
  - MEDICATION ERROR [None]
  - MYOCLONUS [None]
  - TREATMENT NONCOMPLIANCE [None]
  - URINARY RETENTION [None]
  - VISION BLURRED [None]
